FAERS Safety Report 10584636 (Version 1)
Quarter: 2014Q4

REPORT INFORMATION
  Report Type: Spontaneous
  Country: US (occurrence: None)
  Receive Date: 20141113
  Receipt Date: 20141113
  Transmission Date: 20150529
  Serious: Yes (Life-Threatening)
  Sender: FDA-Public Use
  Company Number: None

PATIENT
  Age: 13 Month
  Sex: Male
  Weight: 10.5 kg

DRUGS (3)
  1. INFLIXIMAB [Suspect]
     Active Substance: INFLIXIMAB
     Indication: KAWASAKI^S DISEASE
     Dosage: 1 DOSE IN OCTOBER 2014, 10MG/KG, ONCE, INTRAVENOUS
     Route: 042
  2. HIGH DOSE ASPIRIN [Concomitant]
  3. METHYLPREDNISOLONE. [Concomitant]
     Active Substance: METHYLPREDNISOLONE

REACTIONS (9)
  - Peripheral swelling [None]
  - Hypertension [None]
  - Circulatory collapse [None]
  - Pulmonary hypertensive crisis [None]
  - Pyrexia [None]
  - Respiratory distress [None]
  - Rash [None]
  - Lymphadenopathy [None]
  - Conjunctivitis [None]
